FAERS Safety Report 24147862 (Version 2)
Quarter: 2024Q3

REPORT INFORMATION
  Report Type: Spontaneous
  Country: CN (occurrence: CN)
  Receive Date: 20240729
  Receipt Date: 20240730
  Transmission Date: 20241017
  Serious: Yes (Hospitalization, Other)
  Sender: MERCK
  Company Number: CN-009507513-2407CHN014727

PATIENT
  Age: 72 Year
  Sex: Female
  Weight: 67.5 kg

DRUGS (4)
  1. JANUVIA [Suspect]
     Active Substance: SITAGLIPTIN PHOSPHATE
     Indication: Blood glucose abnormal
     Dosage: 100 MILLIGRAM, QD
     Route: 048
     Dates: start: 20240501, end: 20240711
  2. JANUVIA [Suspect]
     Active Substance: SITAGLIPTIN PHOSPHATE
     Dosage: 100 MILLIGRAM, QD
     Route: 048
     Dates: start: 20240712, end: 20240712
  3. GLICLAZIDE [Suspect]
     Active Substance: GLICLAZIDE
     Indication: Blood glucose abnormal
     Dosage: 60 MILLIGRAM, QD
     Route: 048
     Dates: start: 20240501, end: 20240711
  4. METFORMIN HYDROCHLORIDE [Suspect]
     Active Substance: METFORMIN HYDROCHLORIDE
     Indication: Blood glucose abnormal
     Dosage: 0.5 GRAM, BID
     Route: 048
     Dates: start: 20240501, end: 20240711

REACTIONS (4)
  - Hypoglycaemic coma [Recovering/Resolving]
  - Blood glucose fluctuation [Recovering/Resolving]
  - Blood glucose increased [Recovering/Resolving]
  - Product use issue [Unknown]

NARRATIVE: CASE EVENT DATE: 20240501
